FAERS Safety Report 6369878-9 (Version None)
Quarter: 2009Q3

REPORT INFORMATION
  Report Type: 
  Country: None (occurrence: None)
  Receive Date: 20090923
  Receipt Date: 20070330
  Transmission Date: 20100115
  Serious: Yes (Other)
  Sender: FDA-Public Use
  Company Number: US-ASTRAZENECA-2006UW11059

PATIENT
  Age: 46 Year
  Sex: Male
  Weight: 113.4 kg

DRUGS (36)
  1. SEROQUEL [Suspect]
     Indication: SCHIZOPHRENIA, PARANOID TYPE
     Dosage: 25-900MG
     Route: 048
     Dates: start: 20010110
  2. SEROQUEL [Suspect]
     Route: 048
     Dates: start: 20050901
  3. ZYPREXA [Suspect]
     Dates: end: 19960101
  4. RISPERDAL [Suspect]
     Dates: end: 20060101
  5. GEODON [Concomitant]
  6. STELAZINE [Concomitant]
  7. DEPAKOTE [Concomitant]
     Route: 065
  8. EFFEXOR [Concomitant]
     Indication: DEPRESSION
     Dosage: 75-225 MG
     Route: 048
  9. ALPRAZOLAM [Concomitant]
     Dosage: 0.25-1 MG
     Route: 048
  10. IBUPROFEN [Concomitant]
     Dosage: 600-800 MG
     Route: 065
  11. GLUCOTROL [Concomitant]
     Indication: DIABETES MELLITUS
     Dosage: 5-10 MG
     Route: 065
  12. PRAVACHOL [Concomitant]
     Indication: SCHIZOPHRENIA
     Dosage: 20-40 MG
     Route: 065
  13. CLARINEX [Concomitant]
     Route: 065
  14. BENZTROPINE MESYLATE [Concomitant]
     Route: 048
  15. FLOMAX [Concomitant]
     Indication: PROSTATOMEGALY
     Route: 048
  16. OXYCODONE [Concomitant]
     Dosage: 5/325
     Route: 065
  17. LIDOCAINE [Concomitant]
     Route: 065
  18. EPHEDRINE [Concomitant]
     Dosage: 50 ML/1 ML
     Route: 065
  19. PHENYLEPHRINE [Concomitant]
     Route: 065
  20. ROCURONIUM BROMIDE [Concomitant]
     Route: 065
  21. NEOSTIGMINE [Concomitant]
     Route: 065
  22. PROPOFOL [Concomitant]
     Dosage: 200 MG/20 ML
     Route: 065
  23. GLYCOPYRROLATE [Concomitant]
     Route: 065
  24. TRAZODONE [Concomitant]
     Route: 065
     Dates: start: 20060707
  25. BAYCOL [Concomitant]
     Route: 065
  26. ZOCOR [Concomitant]
     Route: 065
  27. ULTRACET [Concomitant]
     Dosage: 37.5/325
     Route: 065
  28. PROMETHAZINE [Concomitant]
     Dosage: 120-180 ML
     Route: 065
  29. LEVAQUIN [Concomitant]
     Route: 065
  30. AVANDAMET [Concomitant]
     Indication: DIABETES MELLITUS
     Dosage: 1 MG/500M-4 MG/500M
     Route: 065
  31. DICYCLOMINE [Concomitant]
     Dosage: 10-20 MG
     Route: 065
  32. ABILIFY [Concomitant]
     Dosage: 10-15 MG
     Route: 065
  33. ALBUTEROL [Concomitant]
     Route: 065
  34. VYTORIN [Concomitant]
     Dosage: 10/20 MG
     Route: 065
  35. ATROVENT [Concomitant]
     Indication: DYSPNOEA
     Route: 065
  36. MARCAINE [Concomitant]
     Route: 065

REACTIONS (2)
  - DIABETES MELLITUS [None]
  - DIABETIC KETOACIDOSIS [None]
